FAERS Safety Report 21830000 (Version 1)
Quarter: 2023Q1

REPORT INFORMATION
  Report Type: Spontaneous
  Country: CN (occurrence: CN)
  Receive Date: 20230106
  Receipt Date: 20230106
  Transmission Date: 20230417
  Serious: Yes (Hospitalization)
  Sender: FDA-Public Use
  Company Number: CN-HALEON-CNCH2023APC000332

PATIENT

DRUGS (9)
  1. IBUPROFEN [Suspect]
     Active Substance: IBUPROFEN
     Indication: Pyrexia
     Dosage: 0.3 G, QD
     Route: 048
     Dates: start: 20221220, end: 20221222
  2. IBUPROFEN [Suspect]
     Active Substance: IBUPROFEN
     Indication: Cough
  3. IBUPROFEN [Suspect]
     Active Substance: IBUPROFEN
     Indication: Headache
  4. HERBALS [Suspect]
     Active Substance: HERBALS
     Indication: Pyrexia
     Dosage: 1.4 G, TID
     Route: 048
     Dates: start: 20221220, end: 20221222
  5. HERBALS [Suspect]
     Active Substance: HERBALS
     Indication: Cough
  6. HERBALS [Suspect]
     Active Substance: HERBALS
     Indication: Headache
  7. AMOXICILLIN [Suspect]
     Active Substance: AMOXICILLIN
     Indication: Pyrexia
     Dosage: 0.5 G, QD
     Dates: start: 20221220, end: 20221222
  8. AMOXICILLIN [Suspect]
     Active Substance: AMOXICILLIN
     Indication: Cough
  9. AMOXICILLIN [Suspect]
     Active Substance: AMOXICILLIN
     Indication: Headache

REACTIONS (8)
  - Erythema [Recovering/Resolving]
  - Rash maculo-papular [Recovering/Resolving]
  - Pruritus [Recovering/Resolving]
  - Drug eruption [Recovering/Resolving]
  - Skin lesion [Recovering/Resolving]
  - Rash erythematous [Recovering/Resolving]
  - Inappropriate schedule of product administration [Unknown]
  - Product use in unapproved indication [Unknown]

NARRATIVE: CASE EVENT DATE: 20221220
